FAERS Safety Report 4515008-5 (Version None)
Quarter: 2004Q4

REPORT INFORMATION
  Report Type: 
  Country: None (occurrence: None)
  Receive Date: 20041129
  Receipt Date: 20041129
  Transmission Date: 20050328
  Serious: No
  Sender: FDA-Public Use
  Company Number: None

PATIENT
  Sex: Male
  Weight: 65 kg

DRUGS (1)
  1. METOCLOPRAMIDE [Suspect]
     Dosage: 5MG   QAC AND HS    ORAL
     Route: 048
     Dates: start: 20040720, end: 20040722

REACTIONS (5)
  - DEPRESSED LEVEL OF CONSCIOUSNESS [None]
  - DRUG INEFFECTIVE [None]
  - DYSTONIA [None]
  - MUSCLE RIGIDITY [None]
  - OCULOGYRATION [None]
